FAERS Safety Report 15458565 (Version 2)
Quarter: 2019Q1

REPORT INFORMATION
  Report Type: Spontaneous
  Country: US (occurrence: US)
  Receive Date: 20181003
  Receipt Date: 20190103
  Transmission Date: 20190417
  Serious: Yes (Hospitalization)
  Sender: FDA-Public Use
  Company Number: US-B.I. PHARMACEUTICALS,INC./RIDGEFIELD-2018-BI-048016

PATIENT
  Age: 74 Year
  Sex: Female
  Weight: 97.06 kg

DRUGS (1)
  1. PRADAXA [Suspect]
     Active Substance: DABIGATRAN ETEXILATE MESYLATE
     Indication: ATRIAL FIBRILLATION
     Route: 048
     Dates: start: 2013, end: 20180903

REACTIONS (6)
  - Hip arthroplasty [Recovered/Resolved]
  - Renal cyst [Not Recovered/Not Resolved]
  - Renal neoplasm [Unknown]
  - Nephrolithiasis [Not Recovered/Not Resolved]
  - Cardiac disorder [Unknown]
  - Blood urine present [Recovered/Resolved]

NARRATIVE: CASE EVENT DATE: 201710
